FAERS Safety Report 19438675 (Version 1)
Quarter: 2021Q2

REPORT INFORMATION
  Report Type: Other
  Country: US (occurrence: US)
  Receive Date: 20210618
  Receipt Date: 20210618
  Transmission Date: 20210717
  Serious: No
  Sender: FDA-Public Use
  Company Number: US-COVIS PHARMA GMBH-AMAG202100978

PATIENT
  Age: 28 Year
  Sex: Female
  Weight: 88.98 kg

DRUGS (1)
  1. MAKENA [Suspect]
     Active Substance: HYDROXYPROGESTERONE CAPROATE
     Indication: PREMATURE DELIVERY
     Route: 058
     Dates: start: 20210204, end: 20210311

REACTIONS (3)
  - Injection site pruritus [Unknown]
  - Pain in extremity [Unknown]
  - Scar [Unknown]
